FAERS Safety Report 4589916-3 (Version None)
Quarter: 2005Q1

REPORT INFORMATION
  Report Type: 
  Country: None (occurrence: None)
  Receive Date: 20050125
  Receipt Date: 20041130
  Transmission Date: 20050727
  Serious: No
  Sender: FDA-Public Use
  Company Number: USA040875271

PATIENT
  Age: 81 Year
  Sex: Female
  Weight: 61 kg

DRUGS (12)
  1. FORTEO [Suspect]
     Indication: OSTEOPOROSIS
     Dosage: 20 UG DAY
     Dates: start: 20040422
  2. HYDROCHLOROTHIAZIDE [Concomitant]
  3. ATENOLOL [Concomitant]
  4. FOSAMAX [Concomitant]
  5. VITAMIN B6 [Concomitant]
  6. VITAMIN B-12 [Concomitant]
  7. VITAMIN C [Concomitant]
  8. VITAMIN E [Concomitant]
  9. CALCIUM GLUCONATE [Concomitant]
  10. MIRALAX [Concomitant]
  11. VIOXX [Concomitant]
  12. ACETYLSALICYLIC ACID SRT [Concomitant]

REACTIONS (6)
  - ASTHENIA [None]
  - BALANCE DISORDER [None]
  - DIZZINESS [None]
  - HYPERTENSION [None]
  - MUSCULAR WEAKNESS [None]
  - THYROID DISORDER [None]
